FAERS Safety Report 8891345 (Version 1)
Quarter: 2012Q4

REPORT INFORMATION
  Report Type: Spontaneous
  Country: US (occurrence: None)
  Receive Date: 20121102
  Receipt Date: 20121102
  Transmission Date: 20130627
  Serious: Yes (Other)
  Sender: FDA-Public Use
  Company Number: None

PATIENT

DRUGS (2)
  1. CIPROFLOXACIN [Suspect]
     Indication: ABRASION NOS
     Dosage: 1 DROP 3XDAILY OPHTHALMIC
     Route: 047
     Dates: start: 20121018, end: 20121025
  2. CIPROFLOXACIN [Suspect]
     Indication: INFECTION
     Dosage: 1 DROP 3XDAILY OPHTHALMIC
     Route: 047
     Dates: start: 20121018, end: 20121025

REACTIONS (2)
  - Eye disorder [None]
  - Excoriation [None]
